FAERS Safety Report 24065394 (Version 2)
Quarter: 2024Q3

REPORT INFORMATION
  Report Type: Spontaneous
  Country: US (occurrence: US)
  Receive Date: 20240709
  Receipt Date: 20240903
  Transmission Date: 20241016
  Serious: Yes (Disabling)
  Sender: DUTCH OPTHALMIC RESEARCH CENTER
  Company Number: US-D.O.R.C. International, b.v.-2158954

PATIENT
  Age: 65 Year
  Sex: Female

DRUGS (1)
  1. BRILLIANT BLUE G [Suspect]
     Active Substance: BRILLIANT BLUE G
     Dates: start: 20240301, end: 20240301

REACTIONS (1)
  - Visual impairment [Not Recovered/Not Resolved]

NARRATIVE: CASE EVENT DATE: 20240301
